FAERS Safety Report 7097350-X (Version None)
Quarter: 2010Q4

REPORT INFORMATION
  Report Type: 
  Country: None (occurrence: None)
  Receive Date: 20101111
  Receipt Date: 20101108
  Transmission Date: 20110411
  Serious: Yes (Death, Hospitalization)
  Sender: FDA-Public Use
  Company Number: US-CELGENEUS-163-21880-10101615

PATIENT
  Sex: Female

DRUGS (5)
  1. REVLIMID [Suspect]
     Indication: MULTIPLE MYELOMA
     Route: 048
     Dates: start: 20070501
  2. REVLIMID [Suspect]
     Route: 048
     Dates: start: 20080301
  3. REVLIMID [Suspect]
     Dosage: 5-10MG
     Route: 048
     Dates: start: 20081101
  4. REVLIMID [Suspect]
     Route: 048
     Dates: start: 20100401
  5. REVLIMID [Suspect]
     Route: 048
     Dates: start: 20101001

REACTIONS (2)
  - DEATH [None]
  - MULTIPLE MYELOMA [None]
